FAERS Safety Report 25680557 (Version 2)
Quarter: 2025Q3

REPORT INFORMATION
  Report Type: Spontaneous
  Country: TR (occurrence: TR)
  Receive Date: 20250814
  Receipt Date: 20250909
  Transmission Date: 20251021
  Serious: Yes (Other)
  Sender: ALEXION PHARMACEUTICALS
  Company Number: TR-ASTRAZENECA-202508TUR008870TR

PATIENT
  Age: 69 Year
  Sex: Female

DRUGS (9)
  1. DAPAGLIFLOZIN [Suspect]
     Active Substance: DAPAGLIFLOZIN
     Indication: Diabetes mellitus
     Dosage: 10 MILLIGRAM, 1X1
     Dates: end: 20250806
  2. Colnar [Concomitant]
  3. ASPIRIN [Concomitant]
     Active Substance: ASPIRIN
  4. EDOXABAN TOSYLATE [Concomitant]
     Active Substance: EDOXABAN TOSYLATE
  5. Beloc [Concomitant]
  6. AMLODIPINE BESYLATE\INDAPAMIDE\PERINDOPRIL ARGININE [Concomitant]
     Active Substance: AMLODIPINE BESYLATE\INDAPAMIDE\PERINDOPRIL ARGININE
     Indication: Hypertension
  7. PROPAFENONE [Concomitant]
     Active Substance: PROPAFENONE
  8. Serex [Concomitant]
  9. ESCITALOPRAM OXALATE [Concomitant]
     Active Substance: ESCITALOPRAM OXALATE
     Indication: Panic attack

REACTIONS (6)
  - Oliguria [Recovered/Resolved]
  - Pollakiuria [Recovered/Resolved]
  - Haematuria [Recovered/Resolved]
  - Oropharyngeal pain [Recovered/Resolved]
  - Dry mouth [Recovered/Resolved]
  - Fatigue [Recovered/Resolved]
